FAERS Safety Report 23034807 (Version 1)
Quarter: 2023Q4

REPORT INFORMATION
  Report Type: Spontaneous
  Country: US (occurrence: US)
  Receive Date: 20231005
  Receipt Date: 20231005
  Transmission Date: 20240110
  Serious: Yes (Other)
  Sender: FDA-Public Use
  Company Number: US-INCYTE CORPORATION-2023IN010169

PATIENT

DRUGS (1)
  1. JAKAFI [Suspect]
     Active Substance: RUXOLITINIB
     Indication: Essential thrombocythaemia
     Dosage: 20 MILLIGRAM, BID
     Route: 048

REACTIONS (6)
  - Hernia [Unknown]
  - Procedural pain [Unknown]
  - Weight increased [Unknown]
  - Constipation [Unknown]
  - Dyspnoea [Unknown]
  - Off label use [Unknown]
